FAERS Safety Report 5135431-8 (Version None)
Quarter: 2006Q4

REPORT INFORMATION
  Report Type: 
  Country: None (occurrence: None)
  Receive Date: 20061026
  Receipt Date: 20060524
  Transmission Date: 20070319
  Serious: Yes (Hospitalization)
  Sender: FDA-Public Use
  Company Number: CZ-GLAXOSMITHKLINE-B0442983A

PATIENT
  Age: 76 Year
  Sex: Male
  Weight: 110 kg

DRUGS (2)
  1. REQUIP [Suspect]
     Indication: PARKINSON'S DISEASE
     Route: 048
     Dates: start: 20041123
  2. RHEFLUIN [Concomitant]
     Dosage: 27.5MG PER DAY
     Route: 048
     Dates: start: 20051130, end: 20051216

REACTIONS (3)
  - CYSTITIS [None]
  - HEPATIC STEATOSIS [None]
  - LYMPHOEDEMA [None]
